FAERS Safety Report 9089042 (Version 1)
Quarter: 2013Q1

REPORT INFORMATION
  Report Type: Report from Study
  Country: US (occurrence: US)
  Receive Date: 20130218
  Receipt Date: 20130218
  Transmission Date: 20140127
  Serious: No
  Sender: FDA-Public Use
  Company Number: US-ABBOTT-12P-163-0936376-00

PATIENT
  Sex: Male
  Weight: 79.45 kg

DRUGS (2)
  1. SIMCOR 500MG/40MG [Suspect]
     Indication: HYPERLIPIDAEMIA
     Dosage: EVERY NIGHT
     Dates: start: 20120303
  2. VITAMIN D3 [Concomitant]
     Indication: VITAMIN SUPPLEMENTATION

REACTIONS (2)
  - Skin burning sensation [Recovered/Resolved]
  - Feeling hot [Recovered/Resolved]
